FAERS Safety Report 18291741 (Version 1)
Quarter: 2020Q3

REPORT INFORMATION
  Report Type: Spontaneous
  Country: DE (occurrence: DE)
  Receive Date: 20200921
  Receipt Date: 20200921
  Transmission Date: 20201103
  Serious: Yes (Other)
  Sender: FDA-Public Use
  Company Number: DE-ASTRAZENECA-2020SF19729

PATIENT
  Age: 45 Year
  Sex: Female

DRUGS (2)
  1. OSIMERTINIB. [Suspect]
     Active Substance: OSIMERTINIB
     Indication: NON-SMALL CELL LUNG CANCER STAGE 0
     Dosage: UNKNOWN
     Route: 048
     Dates: start: 201903
  2. PEMETREXED. [Concomitant]
     Active Substance: PEMETREXED
     Dosage: 3 CYCLES MAINTENANCE CHEMOTHERAPY WITH PEMETREXED
     Dates: start: 201912, end: 202002

REACTIONS (3)
  - Metastases to meninges [Unknown]
  - Malignant neoplasm progression [Unknown]
  - Metastases to adrenals [Unknown]

NARRATIVE: CASE EVENT DATE: 201908
